FAERS Safety Report 15522898 (Version 1)
Quarter: 2018Q4

REPORT INFORMATION
  Report Type: Spontaneous
  Country: MX (occurrence: MX)
  Receive Date: 20181014
  Receipt Date: 20181014
  Transmission Date: 20190205
  Serious: Yes (Hospitalization)
  Sender: FDA-Public Use
  Company Number: None

PATIENT
  Age: 1 Year
  Sex: Female
  Weight: 9 kg

DRUGS (5)
  1. BIOMICS [Suspect]
     Active Substance: CEFIXIME
     Indication: GASTRIC INFECTION
     Dates: start: 20181007, end: 20181010
  2. DIFENHIDRAMINA [Concomitant]
  3. ANEREX [Concomitant]
  4. VITERNUM [Concomitant]
  5. PREDNISONE. [Concomitant]
     Active Substance: PREDNISONE

REACTIONS (3)
  - Eye swelling [None]
  - Rash generalised [None]
  - Swelling face [None]

NARRATIVE: CASE EVENT DATE: 20181011
